FAERS Safety Report 6102718-1 (Version None)
Quarter: 2009Q1

REPORT INFORMATION
  Report Type: 
  Country: None (occurrence: None)
  Receive Date: 20090304
  Receipt Date: 20090219
  Transmission Date: 20090719
  Serious: No
  Sender: FDA-Public Use
  Company Number: PT-SANOFI-SYNTHELABO-A01200901194

PATIENT
  Sex: Female
  Weight: 58 kg

DRUGS (4)
  1. ONDASETRON [Concomitant]
     Route: 042
     Dates: start: 20081022
  2. DEXAMETHASONE [Concomitant]
     Route: 042
     Dates: start: 20081022
  3. FOLINIC ACID [Concomitant]
     Route: 041
     Dates: start: 20081022
  4. ELOXATIN [Suspect]
     Indication: COLON CANCER
     Route: 041
     Dates: start: 20090203, end: 20090203

REACTIONS (2)
  - HYPERSENSITIVITY [None]
  - NAUSEA [None]
